FAERS Safety Report 7585050-9 (Version None)
Quarter: 2011Q2

REPORT INFORMATION
  Report Type: 
  Country: None (occurrence: None)
  Receive Date: 20110630
  Receipt Date: 20110621
  Transmission Date: 20111010
  Serious: Yes (Other)
  Sender: FDA-Public Use
  Company Number: US-ASTRAZENECA-2011SE37439

PATIENT
  Sex: Female

DRUGS (1)
  1. NEXIUM [Suspect]
     Indication: ULCER
     Route: 048
     Dates: start: 20040101

REACTIONS (3)
  - BONE DENSITY ABNORMAL [None]
  - SPINAL FRACTURE [None]
  - HAND FRACTURE [None]
